FAERS Safety Report 24189557 (Version 4)
Quarter: 2024Q4

REPORT INFORMATION
  Report Type: Spontaneous
  Country: US (occurrence: US)
  Receive Date: 20240808
  Receipt Date: 20241203
  Transmission Date: 20250114
  Serious: No
  Sender: PFIZER
  Company Number: US-PFIZER INC-202400229694

PATIENT
  Age: 18 Year
  Sex: Male
  Weight: 97.52 kg

DRUGS (1)
  1. GENOTROPIN [Suspect]
     Active Substance: SOMATROPIN
     Indication: Growth failure
     Dosage: 4 MG, DAILY/ 4.0 EVERY DAY OF THE WEEK IN HIS STOMACH

REACTIONS (5)
  - Device use error [Unknown]
  - Device use issue [Unknown]
  - Device information output issue [Unknown]
  - Device delivery system issue [Unknown]
  - Drug dose omission by device [Unknown]

NARRATIVE: CASE EVENT DATE: 20240731
